FAERS Safety Report 24423364 (Version 1)
Quarter: 2024Q4

REPORT INFORMATION
  Report Type: Spontaneous
  Country: US (occurrence: US)
  Receive Date: 20241010
  Receipt Date: 20241010
  Transmission Date: 20250115
  Serious: Yes (Hospitalization)
  Sender: TORRENT
  Company Number: US-TORRENT-00013783

PATIENT
  Age: 48 Year
  Sex: Male

DRUGS (3)
  1. ACYCLOVIR [Suspect]
     Active Substance: ACYCLOVIR
     Indication: Herpes simplex
     Dosage: 400 MG 5 TIMES PER DAY FOR 1 MONTH
     Route: 065
  2. METHYLPREDNISOLONE [Concomitant]
     Active Substance: METHYLPREDNISOLONE
     Indication: Herpes simplex
     Dosage: METHYLPREDNISOLONE FOR 1 MONTH
     Route: 065
  3. VALACYCLOVIR [Concomitant]
     Active Substance: VALACYCLOVIR HYDROCHLORIDE
     Indication: Herpes simplex
     Dosage: 1 G 3 TIMES DAILY FOR 1 MONTH
     Route: 065

REACTIONS (1)
  - Drug resistance [Unknown]
